APPROVED DRUG PRODUCT: MEROPENEM
Active Ingredient: MEROPENEM
Strength: 2GM/VIAL
Dosage Form/Route: POWDER;INTRAVENOUS
Application: N215212 | Product #001 | TE Code: AP
Applicant: HQ SPECIALTY PHARMA CORP
Approved: Jul 26, 2023 | RLD: Yes | RS: Yes | Type: RX